FAERS Safety Report 5375406-7 (Version None)
Quarter: 2007Q2

REPORT INFORMATION
  Report Type: 
  Country: None (occurrence: None)
  Receive Date: 20070629
  Receipt Date: 20070619
  Transmission Date: 20071010
  Serious: Yes (Hospitalization, Other)
  Sender: FDA-Public Use
  Company Number: AU-PFIZER INC-2007032248

PATIENT
  Sex: Female
  Weight: 60 kg

DRUGS (2)
  1. ZELDOX (CAPSULES) [Suspect]
     Dates: start: 20070301, end: 20070301
  2. OLANZAPINE [Concomitant]

REACTIONS (5)
  - AKATHISIA [None]
  - ANXIETY [None]
  - DIZZINESS [None]
  - RESTLESSNESS [None]
  - TARDIVE DYSKINESIA [None]
